FAERS Safety Report 19195476 (Version 2)
Quarter: 2021Q2

REPORT INFORMATION
  Report Type: Report from Study
  Country: BR (occurrence: BR)
  Receive Date: 20210429
  Receipt Date: 20210505
  Transmission Date: 20210717
  Serious: Yes (Hospitalization)
  Sender: FDA-Public Use
  Company Number: BR-ROCHE-2817780

PATIENT
  Age: 61 Year
  Sex: Female
  Weight: 92.2 kg

DRUGS (2)
  1. ATEZOLIZUMAB. [Suspect]
     Active Substance: ATEZOLIZUMAB
     Indication: MALIGNANT MELANOMA
     Dosage: ON DAYS 1 AND 15 OF EACH 28?DAY CYCLE, UNTIL LOSS OF CLINICAL BENEFIT
     Route: 042
  2. COBIMETINIB. [Suspect]
     Active Substance: COBIMETINIB
     Indication: MALIGNANT MELANOMA
     Dosage: ON DAYS 1?21 OF EACH 28?DAY CYCLE, UNTIL LOSS OF CLINICAL BENEFIT. ?DURING SUBSEQUENT 28?DAY CYCLES
     Route: 048

REACTIONS (1)
  - COVID-19 [Recovered/Resolved]

NARRATIVE: CASE EVENT DATE: 20210324
